FAERS Safety Report 15840320 (Version 1)
Quarter: 2019Q1

REPORT INFORMATION
  Report Type: Spontaneous
  Country: GB (occurrence: GB)
  Receive Date: 20190117
  Receipt Date: 20190117
  Transmission Date: 20190417
  Serious: Yes (Other)
  Sender: FDA-Public Use
  Company Number: GB-TEVA-2019-GB-999697

PATIENT
  Age: 81 Year
  Sex: Male
  Weight: 75 kg

DRUGS (8)
  1. DIPROBASE [Concomitant]
     Active Substance: CHLOROCRESOL
     Dosage: APPLY.
     Dates: start: 20181205, end: 20181206
  2. PRAVASTATIN. [Concomitant]
     Active Substance: PRAVASTATIN
     Dosage: 1 DOSAGE FORMS DAILY; AT NIGHT.
     Dates: start: 20181205
  3. HYDROCORTISONE. [Concomitant]
     Active Substance: HYDROCORTISONE
     Dosage: 1 DOSAGE FORMS DAILY;
     Dates: start: 20181205, end: 20181206
  4. SOLIFENACIN [Concomitant]
     Active Substance: SOLIFENACIN
     Dosage: 1 DOSAGE FORMS DAILY; EACH NIGHT.
     Dates: start: 20180914
  5. TAMSULOSIN HYDROCHLORIDE. [Concomitant]
     Active Substance: TAMSULOSIN HYDROCHLORIDE
     Dosage: 1 DOSAGE FORMS DAILY; EACH MORNING.
     Dates: start: 20180914
  6. ATORVASTATIN [Suspect]
     Active Substance: ATORVASTATIN
     Dosage: 40 MILLIGRAM DAILY;
     Dates: start: 20180914
  7. ACETYLSALICYLIC ACID [Concomitant]
     Active Substance: ASPIRIN
     Dosage: 1 DOSAGE FORMS DAILY;
     Dates: start: 20180914
  8. LOSARTAN. [Concomitant]
     Active Substance: LOSARTAN
     Dosage: 1 DOSAGE FORMS DAILY;
     Dates: start: 20180914

REACTIONS (1)
  - Eczema [Recovered/Resolved]
